FAERS Safety Report 24142232 (Version 1)
Quarter: 2024Q3

REPORT INFORMATION
  Report Type: Spontaneous
  Country: FR (occurrence: FR)
  Receive Date: 20240726
  Receipt Date: 20240726
  Transmission Date: 20241016
  Serious: Yes (Hospitalization)
  Sender: FRESENIUS KABI
  Company Number: None

PATIENT
  Age: 70 Year
  Sex: Male
  Weight: 79 kg

DRUGS (4)
  1. CARBOPLATIN [Suspect]
     Active Substance: CARBOPLATIN
     Indication: Lung adenocarcinoma
     Dosage: ROUTE: INTRAVENOUS
     Dates: start: 20240618, end: 20240618
  2. ALIMTA [Suspect]
     Active Substance: PEMETREXED DISODIUM
     Indication: Lung adenocarcinoma
     Dosage: ROUTE: INTRAVENOUS
     Dates: start: 20240618, end: 20240618
  3. TAGRISSO [Suspect]
     Active Substance: OSIMERTINIB
     Indication: Lung adenocarcinoma
     Dosage: ROUTE: ORAL
     Dates: start: 20240611, end: 20240702
  4. RYBREVANT 350 mg concentrate for concentrate for solution for infusion [Concomitant]
     Indication: Lung adenocarcinoma
     Dosage: ROUTE: INTRAVENIOUS
     Dates: start: 20240514, end: 20240618

REACTIONS (6)
  - Rash maculo-papular [Not Recovered/Not Resolved]
  - Rash vesicular [Not Recovered/Not Resolved]
  - Erythema [Not Recovered/Not Resolved]
  - Scab [Not Recovered/Not Resolved]
  - Genital tract inflammation [Not Recovered/Not Resolved]
  - Mouth ulceration [Not Recovered/Not Resolved]

NARRATIVE: CASE EVENT DATE: 20240622
